FAERS Safety Report 18040547 (Version 2)
Quarter: 2020Q3

REPORT INFORMATION
  Report Type: Spontaneous
  Country: EG (occurrence: EG)
  Receive Date: 20200717
  Receipt Date: 20200729
  Transmission Date: 20201103
  Serious: Yes (Other)
  Sender: FDA-Public Use
  Company Number: EG-NOVOPROD-739935

PATIENT
  Age: 58 Year
  Sex: Male
  Weight: 130 kg

DRUGS (9)
  1. GALVUS MET [METFORMIN;VILDAGLIPTIN] [Concomitant]
     Indication: DIABETES MELLITUS
     Dosage: 1 TAB.\DAY,  2 YEARS AGO.
     Route: 048
  2. THIOTACID [Concomitant]
     Active Substance: .ALPHA.-LIPOIC ACID
     Indication: NEUROPATHY PERIPHERAL
     Dosage: 2 TAB.\DAY, 5 YEARS AGO.
     Route: 048
  3. MIXTARD 30 HM PENFILL [Suspect]
     Active Substance: INSULIN HUMAN
     Indication: DIABETES MELLITUS
     Dosage: 90 IU, QD (60?0?30),STARTED 5 YEARS AGO
     Route: 058
  4. ATACAND PLUS [Concomitant]
     Active Substance: CANDESARTAN CILEXETIL\HYDROCHLOROTHIAZIDE
     Indication: HYPERTENSION
     Dosage: TAB.\BREAKFAST, TWO AND HALF YEARS AGO.
     Route: 048
  5. STARKOPREX [Concomitant]
     Indication: PROSTATIC DISORDER
     Dosage: 1 TAB.\ BREAKFAST, 2 YEARS AGO
     Route: 048
  6. OCUGARD [Concomitant]
     Indication: EYE DISORDER
     Dosage: 1 CAP.\LUNCH, 4 YEARS AGO
     Route: 048
  7. TAMSULOSIN [Concomitant]
     Active Substance: TAMSULOSIN
     Indication: PROSTATOMEGALY
     Dosage: 1 CAP.\DINNER 4 YEARS AGO.
     Route: 048
  8. GAPTIN [Concomitant]
     Indication: ANALGESIC THERAPY
     Dosage: 1 TAB.\DINNER, STARTED 4 OR 5 YEARS AGO
     Route: 048
  9. PROSTRIDE [Concomitant]
     Indication: PROSTATOMEGALY
     Dosage: 1 CAP.\LUNCH, 3 YEARS AGO.
     Route: 048

REACTIONS (1)
  - Cataract [Not Recovered/Not Resolved]

NARRATIVE: CASE EVENT DATE: 2018
